FAERS Safety Report 8128766-8 (Version None)
Quarter: 2012Q1

REPORT INFORMATION
  Report Type: 
  Country: None (occurrence: None)
  Receive Date: 20120210
  Receipt Date: 20120127
  Transmission Date: 20120608
  Serious: Yes (Hospitalization)
  Sender: FDA-Public Use
  Company Number: US-WATSON-2012-01459

PATIENT
  Sex: Female

DRUGS (2)
  1. COLCHICINE [Suspect]
     Indication: GOUT
     Dosage: UNK
     Route: 065
  2. ULORIC [Suspect]
     Indication: GOUT
     Dosage: UNK
     Route: 048

REACTIONS (2)
  - HOSPITALISATION [None]
  - RENAL IMPAIRMENT [None]
